FAERS Safety Report 13343844 (Version 2)
Quarter: 2017Q1

REPORT INFORMATION
  Report Type: Spontaneous
  Country: IT (occurrence: IT)
  Receive Date: 20170316
  Receipt Date: 20170331
  Transmission Date: 20170428
  Serious: Yes (Hospitalization, Other)
  Sender: FDA-Public Use
  Company Number: IT-SAOL THERAPEUTICS-2017SAO00489

PATIENT
  Sex: Female

DRUGS (1)
  1. BACLOFEN. [Suspect]
     Active Substance: BACLOFEN
     Dosage: UNK ?G, UNK
     Route: 037

REACTIONS (3)
  - Drug withdrawal syndrome [Recovered/Resolved]
  - Coma [Recovered/Resolved]
  - Incorrect dosage administered [Recovered/Resolved]
